FAERS Safety Report 4411637-8 (Version None)
Quarter: 2004Q3

REPORT INFORMATION
  Report Type: 
  Country: None (occurrence: None)
  Receive Date: 20040728
  Receipt Date: 20040728
  Transmission Date: 20050211
  Serious: Yes (Other)
  Sender: FDA-Public Use
  Company Number: None

PATIENT
  Age: 36 Year
  Sex: Female
  Weight: 67.1324 kg

DRUGS (1)
  1. LEVOTHYROXINE SODIUM [Suspect]
     Indication: HYPOTHYROIDISM
     Dosage: .075MCG DAILY ORAL
     Route: 048
     Dates: start: 20040708, end: 20040727

REACTIONS (3)
  - DRUG INEFFECTIVE [None]
  - HYPOTHYROIDISM [None]
  - PHARMACEUTICAL PRODUCT COMPLAINT [None]
